FAERS Safety Report 6104807-4 (Version None)
Quarter: 2009Q1

REPORT INFORMATION
  Report Type: 
  Country: None (occurrence: None)
  Receive Date: 20090304
  Receipt Date: 20090304
  Transmission Date: 20090719
  Serious: No
  Sender: FDA-Public Use
  Company Number: None

PATIENT
  Sex: Female
  Weight: 72.5755 kg

DRUGS (1)
  1. URSODIOL [Suspect]
     Indication: BILIARY CIRRHOSIS PRIMARY
     Dosage: 5 PO QAM
     Route: 048
     Dates: start: 20080904

REACTIONS (2)
  - CHOKING [None]
  - DRUG INTOLERANCE [None]
